FAERS Safety Report 4410772-8 (Version None)
Quarter: 2004Q3

REPORT INFORMATION
  Report Type: 
  Country: None (occurrence: None)
  Receive Date: 20040726
  Receipt Date: 20040712
  Transmission Date: 20050211
  Serious: No
  Sender: FDA-Public Use
  Company Number: 02P-163-0190770-00

PATIENT
  Age: 62 Year
  Sex: Female
  Weight: 68.9467 kg

DRUGS (1)
  1. MERIDIA [Suspect]
     Indication: WEIGHT CONTROL
     Dosage: 10  MG, PER ORAL
     Route: 048
     Dates: start: 19991118, end: 20000101

REACTIONS (16)
  - BLOOD GLUCOSE INCREASED [None]
  - BLOOD PRESSURE INCREASED [None]
  - BONE DISORDER [None]
  - CALCIUM DEFICIENCY [None]
  - CATARACT [None]
  - CEREBROVASCULAR ACCIDENT [None]
  - EPISTAXIS [None]
  - FLUID RETENTION [None]
  - FOOT FRACTURE [None]
  - INCISIONAL HERNIA [None]
  - MIGRAINE [None]
  - NEUROTOXICITY [None]
  - OVARIAN NEOPLASM [None]
  - POLYP [None]
  - STAPHYLOCOCCAL INFECTION [None]
  - VISUAL DISTURBANCE [None]
